FAERS Safety Report 4905974-8 (Version None)
Quarter: 2006Q1

REPORT INFORMATION
  Report Type: 
  Country: None (occurrence: None)
  Receive Date: 20060206
  Receipt Date: 20060125
  Transmission Date: 20060701
  Serious: Yes (Other)
  Sender: FDA-Public Use
  Company Number: 2005098264

PATIENT
  Age: 47 Year
  Sex: Male

DRUGS (11)
  1. CELEBREX [Suspect]
     Indication: ILL-DEFINED DISORDER
     Dosage: ORAL
     Route: 048
     Dates: start: 20030101
  2. VIOXX [Suspect]
     Indication: BACK PAIN
     Dosage: ORAL
     Route: 048
     Dates: start: 19990101
  3. VIOXX [Suspect]
     Indication: SCIATICA
     Dosage: ORAL
     Route: 048
     Dates: start: 19990101
  4. LIPITOR [Concomitant]
  5. NORVASC [Concomitant]
  6. TRAMADOL (TRAMADOL) [Concomitant]
  7. OTHER ANALGESICS AND ANTIPYRETICS (OTHER ANALGESICS AND ANTIPYRETICS) [Concomitant]
  8. ADVIL [Concomitant]
  9. ULTRAM [Concomitant]
  10. PREVACID [Concomitant]
  11. ZESTORETIC [Concomitant]

REACTIONS (9)
  - ABDOMINAL PAIN UPPER [None]
  - CARDIAC DISORDER [None]
  - CHEST PAIN [None]
  - CORONARY ARTERY OCCLUSION [None]
  - DYSPNOEA [None]
  - EMOTIONAL DISTRESS [None]
  - ERUCTATION [None]
  - INJURY [None]
  - PAIN [None]
